FAERS Safety Report 23135154 (Version 2)
Quarter: 2023Q4

REPORT INFORMATION
  Report Type: Spontaneous
  Country: FR (occurrence: None)
  Receive Date: 20231101
  Receipt Date: 20231117
  Transmission Date: 20240110
  Serious: Yes (Other)
  Sender: FDA-Public Use
  Company Number: 2023A246756

PATIENT
  Age: 12 Week

DRUGS (1)
  1. BEYFORTUS [Suspect]
     Active Substance: NIRSEVIMAB-ALIP
     Dosage: UNK
     Dates: start: 20231005, end: 20231005

REACTIONS (3)
  - Hyperpyrexia [Unknown]
  - Body temperature fluctuation [Recovering/Resolving]
  - Wrong technique in product usage process [Unknown]
